FAERS Safety Report 7414726-9 (Version None)
Quarter: 2011Q2

REPORT INFORMATION
  Report Type: 
  Country: None (occurrence: None)
  Receive Date: 20110414
  Receipt Date: 20091119
  Transmission Date: 20111010
  Serious: Yes (Death, Other)
  Sender: FDA-Public Use
  Company Number: US-BAYER-200940139NA

PATIENT
  Age: 83 Year
  Sex: Male
  Weight: 97.506 kg

DRUGS (38)
  1. TRASYLOL [Suspect]
     Indication: CORONARY ARTERY BYPASS
     Dosage: 1 ML, ONCE (INITIAL)
     Route: 042
     Dates: start: 20040315, end: 20040315
  2. DIOVAN [Concomitant]
     Dosage: 160 MG, QD
     Route: 048
  3. ALEVE LIQUID GEL CAPS [Concomitant]
     Dosage: UNK UNK, PRN
     Route: 048
     Dates: start: 20040101
  4. CALCIUM CHLORIDE [Concomitant]
     Dosage: 1000 MG, UNK
     Route: 042
     Dates: start: 20040315, end: 20040315
  5. MANNITOL [Concomitant]
     Dosage: 125 UNK
     Route: 042
     Dates: start: 20040315, end: 20040315
  6. XANAX [Concomitant]
     Dosage: 0.25 MG Q6HR PRN
     Route: 048
  7. INSULIN [Concomitant]
     Dosage: 5-40 UNITS/HR
     Route: 042
     Dates: start: 20040315
  8. REGULAR INSULIN [Concomitant]
     Dosage: 10 U, UNK
     Route: 042
     Dates: start: 20040315, end: 20040315
  9. LISINOPRIL [Concomitant]
     Dosage: UNK
     Route: 048
     Dates: start: 20040101
  10. TYLENOL REGULAR [Concomitant]
     Dosage: UNK UNK, PRN
     Route: 048
  11. DOPAMINE HCL [Concomitant]
     Dosage: 3 MCG/KG/MIN
     Route: 042
     Dates: start: 20040315
  12. DOBUTAMINE HCL [Concomitant]
     Dosage: 10 MCG/KG/MIN
     Route: 042
     Dates: start: 20040315
  13. TRASYLOL [Suspect]
     Indication: AORTIC VALVE REPLACEMENT
     Dosage: 100 ML, ONCE (LOADING)
     Route: 042
     Dates: start: 20040315, end: 20040315
  14. ACETYLSALICYLIC ACID SRT [Concomitant]
     Dosage: UNK UNK, PRN
     Route: 048
  15. ALLEGRA [Concomitant]
     Dosage: 180 MG, QD
     Route: 048
  16. CELEXA [Concomitant]
     Dosage: 40 MG, QD
     Route: 048
  17. ADVIL LIQUI-GELS [Concomitant]
     Dosage: UNK UNK, PRN
     Route: 048
  18. IBUPROFEN [Concomitant]
     Dosage: UNK UNK, PRN
     Route: 048
  19. FENTANYL [Concomitant]
     Dosage: 6 ML, UNK
     Route: 042
     Dates: start: 20040315, end: 20040315
  20. REGULAR INSULIN [Concomitant]
     Dosage: 30 U, UNK
     Dates: start: 20040315, end: 20040315
  21. MAGNESIUM SULFATE [Concomitant]
     Dosage: 1 G, UNK
     Route: 042
     Dates: start: 20040315, end: 20040315
  22. HYDROCHLOROTHIAZIDE [Concomitant]
     Dosage: 25 MG, QD
     Route: 048
  23. VERSED [Concomitant]
     Dosage: 21 MG, UNK
     Route: 042
     Dates: start: 20040315, end: 20040315
  24. PRECEDEX [Concomitant]
     Dosage: 8 ML/HR
     Route: 042
     Dates: start: 20040315
  25. TRASYLOL [Suspect]
     Dosage: 25 ML/HR
     Route: 042
     Dates: start: 20040315, end: 20040315
  26. LIPITOR [Concomitant]
     Dosage: 40 MG, QD
     Route: 048
  27. PAVULON [Concomitant]
     Dosage: 20 MG, UNK
     Route: 042
     Dates: start: 20040315, end: 20040315
  28. PROTAMINE SULFATE [Concomitant]
     Dosage: 400 MG, UNK
     Route: 042
     Dates: start: 20040315, end: 20040315
  29. RED BLOOD CELLS [Concomitant]
     Dosage: 4 U, UNK
     Route: 042
     Dates: start: 20040315, end: 20040315
  30. FRESH FROZEN PLASMA [Concomitant]
     Dosage: 3 U, UNK
     Route: 042
     Dates: start: 20040315, end: 20040315
  31. CELEBREX [Concomitant]
     Dosage: UNK
     Route: 048
     Dates: start: 20040101
  32. MOTRIN [Concomitant]
     Dosage: UNK UNK, PRN
     Route: 048
  33. EPINEPHRINE [Concomitant]
     Dosage: 75 CC/HR
     Route: 042
     Dates: start: 20040315
  34. HEPARIN [Concomitant]
     Dosage: 30000 U, UNK
     Route: 042
     Dates: start: 20040315, end: 20040315
  35. NOVOLIN R [Concomitant]
     Dosage: 10 U, X2
     Route: 042
     Dates: start: 20040315, end: 20040315
  36. PLATELETS [Concomitant]
     Dosage: 2 UNITS
     Route: 042
     Dates: start: 20040315, end: 20040315
  37. SODIUM BICARBONATE [Concomitant]
     Dosage: 25 UNK
     Route: 042
     Dates: start: 20040315, end: 20040315
  38. GLUCOPHAGE XR [Concomitant]
     Dosage: 2 TABS BID
     Route: 048

REACTIONS (8)
  - RENAL FAILURE [None]
  - RENAL FAILURE ACUTE [None]
  - MENTAL DISORDER [None]
  - DEATH [None]
  - RENAL INJURY [None]
  - PAIN [None]
  - INJURY [None]
  - UNEVALUABLE EVENT [None]
